FAERS Safety Report 6262828-5 (Version None)
Quarter: 2009Q3

REPORT INFORMATION
  Report Type: 
  Country: None (occurrence: None)
  Receive Date: 20090708
  Receipt Date: 20090623
  Transmission Date: 20100115
  Serious: Yes (Other)
  Sender: FDA-Public Use
  Company Number: 8048222

PATIENT
  Age: 55 Year
  Sex: Female
  Weight: 99.7 kg

DRUGS (5)
  1. KEPPRA [Suspect]
     Indication: CONVULSION
     Dosage: 500 MG/2D PO
     Route: 048
     Dates: start: 20090101, end: 20090609
  2. KEPPRA [Suspect]
     Indication: CONVULSION
     Dosage: 500 MG 2/D PO
     Route: 048
     Dates: start: 20080101, end: 20090501
  3. KEPPRA [Suspect]
     Indication: CONVULSION
     Dosage: 1000 MG 2/D PO
     Route: 048
     Dates: start: 20090609
  4. HYDROCHLOROTHIAZIDE [Concomitant]
  5. ATIVAN [Concomitant]

REACTIONS (6)
  - ANXIETY [None]
  - CONFUSIONAL STATE [None]
  - CONVULSION [None]
  - DEPRESSION [None]
  - MENTAL IMPAIRMENT [None]
  - PRODUCT SUBSTITUTION ISSUE [None]
